FAERS Safety Report 8202835-6 (Version None)
Quarter: 2012Q1

REPORT INFORMATION
  Report Type: 
  Country: None (occurrence: None)
  Receive Date: 20120312
  Receipt Date: 20120312
  Transmission Date: 20120608
  Serious: Yes (Life-Threatening)
  Sender: FDA-Public Use
  Company Number: None

PATIENT
  Sex: Male
  Weight: 121.56 kg

DRUGS (2)
  1. ATENOLOL [Suspect]
     Indication: HYPERTENSION
     Dosage: 25 MG
     Route: 048
  2. ATENOLOL [Concomitant]
     Dosage: 25 MG
     Route: 048

REACTIONS (2)
  - DYSPNOEA [None]
  - URTICARIA [None]
